FAERS Safety Report 21192946 (Version 4)
Quarter: 2022Q4

REPORT INFORMATION
  Report Type: Spontaneous
  Country: US (occurrence: US)
  Receive Date: 20220810
  Receipt Date: 20221115
  Transmission Date: 20230112
  Serious: No
  Sender: FDA-Public Use
  Company Number: US-BIOVITRUM-2022US09253

PATIENT
  Age: 2 Year
  Sex: Female

DRUGS (4)
  1. KINERET [Suspect]
     Active Substance: ANAKINRA
     Indication: Encephalitis
     Dates: start: 20220720
  2. KINERET [Suspect]
     Active Substance: ANAKINRA
     Indication: Encephalomyelitis
     Dates: start: 20220714
  3. KINERET [Suspect]
     Active Substance: ANAKINRA
     Dates: start: 202110
  4. KINERET [Suspect]
     Active Substance: ANAKINRA
     Dates: start: 20200624

REACTIONS (6)
  - Illness [Unknown]
  - Screaming [Unknown]
  - Crying [Unknown]
  - Injection site rash [Unknown]
  - Injection site reaction [Unknown]
  - Off label use [Unknown]

NARRATIVE: CASE EVENT DATE: 20211001
